FAERS Safety Report 7357158-4 (Version None)
Quarter: 2011Q1

REPORT INFORMATION
  Report Type: 
  Country: None (occurrence: None)
  Receive Date: 20110308
  Receipt Date: 20110222
  Transmission Date: 20110831
  Serious: Yes (Other)
  Sender: FDA-Public Use
  Company Number: 028416

PATIENT
  Sex: Male

DRUGS (3)
  1. PHENOBARBITONE [Concomitant]
  2. KEPPRA [Suspect]
     Indication: CONVULSION
     Dosage: 100 MG, 500 MG TABLETS ORAL
     Route: 048
     Dates: start: 20101001
  3. ANTIHYPERTENSIVES [Concomitant]

REACTIONS (8)
  - SOMNOLENCE [None]
  - HEPATIC FUNCTION ABNORMAL [None]
  - BLOOD COUNT ABNORMAL [None]
  - BODY TEMPERATURE INCREASED [None]
  - ASPARTATE AMINOTRANSFERASE INCREASED [None]
  - BLOOD ALKALINE PHOSPHATASE INCREASED [None]
  - ALANINE AMINOTRANSFERASE INCREASED [None]
  - ASTHENIA [None]
